FAERS Safety Report 23518591 (Version 1)
Quarter: 2024Q1

REPORT INFORMATION
  Report Type: Spontaneous
  Country: PH (occurrence: PH)
  Receive Date: 20240213
  Receipt Date: 20240213
  Transmission Date: 20240410
  Serious: Yes (Death)
  Sender: FDA-Public Use
  Company Number: PH-SUN PHARMACEUTICAL INDUSTRIES LTD-2024R1-430456

PATIENT
  Age: 40 Year
  Sex: Male

DRUGS (3)
  1. CHOLECALCIFEROL [Suspect]
     Active Substance: CHOLECALCIFEROL
     Indication: Hypercalcaemia
     Dosage: 6000 INTERNATIONAL UNIT
     Route: 065
  2. CALCITRIOL [Suspect]
     Active Substance: CALCITRIOL
     Indication: Hypercalcaemia
     Dosage: 0.5 MILLIGRAM, DAILY
     Route: 065
  3. CALCIUM [Suspect]
     Active Substance: CALCIUM
     Indication: Hypercalcaemia
     Dosage: 14.4 GRAM
     Route: 048

REACTIONS (1)
  - Condition aggravated [Fatal]
